FAERS Safety Report 4691920-1 (Version None)
Quarter: 2005Q2

REPORT INFORMATION
  Report Type: 
  Country: None (occurrence: None)
  Receive Date: 20050614
  Receipt Date: 20050614
  Transmission Date: 20051028
  Serious: Yes (Hospitalization)
  Sender: FDA-Public Use
  Company Number: None

PATIENT
  Age: 53 Year
  Sex: Male

DRUGS (2)
  1. FOSINOPRIL SODIUM [Suspect]
     Indication: HYPERTENSION
     Dosage: 10 MG PO QD
     Route: 048
  2. LITHIUM [Suspect]
     Indication: BIPOLAR DISORDER
     Dosage: 300 MG PO BID 600 MG Q HS
     Route: 048

REACTIONS (7)
  - ASTHENIA [None]
  - BRADYCARDIA [None]
  - ELECTROCARDIOGRAM ABNORMAL [None]
  - HYPERKALAEMIA [None]
  - HYPONATRAEMIA [None]
  - MENTAL IMPAIRMENT [None]
  - SPEECH DISORDER [None]
